FAERS Safety Report 10242577 (Version 1)
Quarter: 2014Q2

REPORT INFORMATION
  Report Type: Spontaneous
  Country: IT (occurrence: IT)
  Receive Date: 20140617
  Receipt Date: 20140617
  Transmission Date: 20141212
  Serious: Yes (Other)
  Sender: FDA-Public Use
  Company Number: IT-ASTRAZENECA-2014SE40628

PATIENT
  Sex: Female

DRUGS (7)
  1. BRILIQUE [Suspect]
     Indication: ACUTE CORONARY SYNDROME
     Route: 048
     Dates: start: 20140527, end: 20140608
  2. LASIX 25 [Concomitant]
  3. TORVAST 40 [Concomitant]
  4. ESKIM [Concomitant]
  5. LANSOX [Concomitant]
  6. QUARK [Concomitant]
  7. CARDIOASPIRIN 100 [Concomitant]

REACTIONS (3)
  - Ventricular arrhythmia [Unknown]
  - Syncope [Unknown]
  - Loss of consciousness [Unknown]
